FAERS Safety Report 6150855-8 (Version None)
Quarter: 2009Q2

REPORT INFORMATION
  Report Type: 
  Country: None (occurrence: None)
  Receive Date: 20090408
  Receipt Date: 20090326
  Transmission Date: 20091009
  Serious: Yes (Death)
  Sender: FDA-Public Use
  Company Number: MC200900087

PATIENT
  Age: 59 Year
  Sex: Female
  Weight: 104.3 kg

DRUGS (1)
  1. ANGIOMAX [Suspect]
     Indication: CORONARY ANGIOPLASTY
     Dosage: 0.75 MG/KG, BOLUS, INTRAVENOUS
     Route: 042
     Dates: start: 20090227, end: 20090227

REACTIONS (7)
  - HAEMODYNAMIC INSTABILITY [None]
  - HYPOTENSION [None]
  - PROCEDURAL COMPLICATION [None]
  - RETROPERITONEAL HAEMORRHAGE [None]
  - SHOCK HAEMORRHAGIC [None]
  - UNDERDOSE [None]
  - VASCULAR INJURY [None]
